FAERS Safety Report 18885448 (Version 1)
Quarter: 2021Q1

REPORT INFORMATION
  Report Type: Spontaneous
  Country: US (occurrence: US)
  Receive Date: 20210211
  Receipt Date: 20210211
  Transmission Date: 20210420
  Serious: No
  Sender: FDA-Public Use
  Company Number: None

PATIENT
  Sex: Male

DRUGS (19)
  1. XOLAIR [Suspect]
     Active Substance: OMALIZUMAB
     Indication: ASTHMA
     Dosage: ?          OTHER FREQUENCY:Q2WK;?
     Route: 058
     Dates: start: 20190816
  2. ALBUTEROL. [Concomitant]
     Active Substance: ALBUTEROL
  3. MONTELUKAST [Concomitant]
     Active Substance: MONTELUKAST SODIUM
  4. TAMSULOSIN [Concomitant]
     Active Substance: TAMSULOSIN
  5. OXYCODONE AND ACETAMINOPHEN [Concomitant]
     Active Substance: ACETAMINOPHEN\OXYCODONE HYDROCHLORIDE
  6. PREDNISONE. [Concomitant]
     Active Substance: PREDNISONE
  7. ROSUVASTATIN. [Concomitant]
     Active Substance: ROSUVASTATIN
  8. SMZ/TMP DS [Concomitant]
     Active Substance: SULFAMETHOXAZOLE\TRIMETHOPRIM
  9. EPINEPHRINE. [Concomitant]
     Active Substance: EPINEPHRINE
  10. ALBUTEROLE/AER [Concomitant]
  11. BUDESONIDE. [Concomitant]
     Active Substance: BUDESONIDE
  12. IBUPROFEN. [Concomitant]
     Active Substance: IBUPROFEN
  13. STERILE WATER SDV LF [Concomitant]
  14. NEB [Concomitant]
  15. HYDRO/APAP [Concomitant]
     Active Substance: ACETAMINOPHEN\HYDROCODONE
  16. BUDES/FORMOT AER [Concomitant]
  17. MUPIROCIN. [Concomitant]
     Active Substance: MUPIROCIN
  18. ONDANSETRON [Concomitant]
     Active Substance: ONDANSETRON
  19. OXYBUTYNIN. [Concomitant]
     Active Substance: OXYBUTYNIN CHLORIDE

REACTIONS (2)
  - COVID-19 [None]
  - Therapy interrupted [None]
